FAERS Safety Report 8511088-0 (Version None)
Quarter: 2012Q3

REPORT INFORMATION
  Report Type: 
  Country: None (occurrence: None)
  Receive Date: 20120716
  Receipt Date: 20120704
  Transmission Date: 20120928
  Serious: Yes (Other)
  Sender: FDA-Public Use
  Company Number: PT-COVIDIEN/TYCO HEALTHCARE/MALLINCKRODT-T201202786

PATIENT
  Age: 86 Year
  Sex: Female

DRUGS (2)
  1. EXALGO [Suspect]
     Dosage: 24 MG (16 MG+8MG), QD
     Route: 048
     Dates: start: 20120501
  2. EXALGO [Suspect]
     Indication: PAIN
     Dosage: 32 MG (16 MG+16 MG) QD
     Route: 048

REACTIONS (4)
  - HALLUCINATION [None]
  - NIGHTMARE [None]
  - DELIRIUM [None]
  - PAIN [None]
